FAERS Safety Report 14426008 (Version 1)
Quarter: 2018Q1

REPORT INFORMATION
  Report Type: Spontaneous
  Country: US (occurrence: US)
  Receive Date: 20180123
  Receipt Date: 20180123
  Transmission Date: 20180509
  Serious: No
  Sender: FDA-Public Use
  Company Number: US-SIGMAPHARM LABORATORIES, LLC-2017SIG00048

PATIENT
  Age: 61 Year
  Sex: Male
  Weight: 92.97 kg

DRUGS (6)
  1. LIOTHYRONINE SODIUM. [Suspect]
     Active Substance: LIOTHYRONINE SODIUM
     Dosage: 37.5 MCG, 1X/DAY
     Route: 048
     Dates: start: 20170808, end: 201708
  2. ARMOUR THYROID [Concomitant]
     Active Substance: THYROID, PORCINE
  3. TESTOSTERONE. [Concomitant]
     Active Substance: TESTOSTERONE
  4. UNSPECIFIED SUPPLEMENTS [Concomitant]
  5. LIOTHYRONINE SODIUM. [Suspect]
     Active Substance: LIOTHYRONINE SODIUM
     Indication: HYPOTHYROIDISM
     Dosage: 25 MCG, 1X/DAY
     Route: 048
     Dates: start: 20170805, end: 20170807
  6. ANASTROZOLE. [Concomitant]
     Active Substance: ANASTROZOLE

REACTIONS (7)
  - Pain [Recovering/Resolving]
  - Asthenia [Recovering/Resolving]
  - Insomnia [Recovering/Resolving]
  - Cortisol increased [Recovered/Resolved]
  - Fatigue [Recovering/Resolving]
  - Stress [Recovered/Resolved]
  - Malabsorption [Recovering/Resolving]

NARRATIVE: CASE EVENT DATE: 20170805
